FAERS Safety Report 9983520 (Version 1)
Quarter: 2014Q1

REPORT INFORMATION
  Report Type: Report from Study
  Country: US (occurrence: US)
  Receive Date: 20140307
  Receipt Date: 20140307
  Transmission Date: 20141002
  Serious: Yes (Hospitalization)
  Sender: FDA-Public Use
  Company Number: US-ALEXION-A201305155

PATIENT
  Sex: Male

DRUGS (2)
  1. SOLIRIS [Suspect]
     Indication: PAROXYSMAL NOCTURNAL HAEMOGLOBINURIA
     Dosage: UNK
     Route: 042
     Dates: end: 201212
  2. FLAGYL [Concomitant]

REACTIONS (5)
  - Inflammatory bowel disease [Unknown]
  - Abdominal pain [Unknown]
  - Infusion related reaction [Unknown]
  - Drug hypersensitivity [Unknown]
  - Haemolysis [Unknown]
